FAERS Safety Report 8843546 (Version 1)
Quarter: 2012Q4

REPORT INFORMATION
  Report Type: 
  Country: US (occurrence: US)
  Receive Date: 20121016
  Receipt Date: 20121016
  Transmission Date: 20130627
  Serious: No
  Sender: FDA-Public Use
  Company Number: US-B.I. PHARMACEUTICALS,INC./RIDGEFIELD-2012-BP-23952BP

PATIENT
  Sex: Female
  Weight: 70 kg

DRUGS (4)
  1. AGGRENOX [Suspect]
     Indication: CEREBROVASCULAR ACCIDENT PROPHYLAXIS
     Route: 048
     Dates: start: 20120601
  2. ZANTAC (RANITIDINE HYDROCHLORIDE) [Suspect]
     Indication: DYSPEPSIA
     Route: 048
     Dates: start: 201206
  3. EXFORGE [Concomitant]
     Indication: HYPERTENSION
     Route: 048
  4. LABETALOL [Concomitant]
     Indication: HYPERTENSION
     Dosage: 100 mg
     Route: 048

REACTIONS (5)
  - Dyspepsia [Not Recovered/Not Resolved]
  - Blood pressure abnormal [Not Recovered/Not Resolved]
  - Dizziness [Not Recovered/Not Resolved]
  - Hunger [Not Recovered/Not Resolved]
  - Epigastric discomfort [Not Recovered/Not Resolved]
